FAERS Safety Report 9226483 (Version 3)
Quarter: 2013Q3

REPORT INFORMATION
  Report Type: Spontaneous
  Country: BR (occurrence: BR)
  Receive Date: 20130411
  Receipt Date: 20130910
  Transmission Date: 20140515
  Serious: Yes (Other)
  Sender: FDA-Public Use
  Company Number: BR-ABBOTT-13X-020-1073742-00

PATIENT
  Age: 18 Year
  Sex: Female
  Weight: 58 kg

DRUGS (4)
  1. DEPAKENE [Suspect]
     Indication: PETIT MAL EPILEPSY
     Route: 048
     Dates: start: 201303
  2. DEPAKENE [Suspect]
     Route: 048
     Dates: start: 20130327
  3. DEPAKENE [Suspect]
  4. FOLIC ACID [Concomitant]
     Indication: PROPHYLAXIS
     Route: 048
     Dates: start: 201303

REACTIONS (13)
  - Petit mal epilepsy [Recovering/Resolving]
  - Abnormal behaviour [Not Recovered/Not Resolved]
  - Nausea [Recovered/Resolved]
  - Vomiting [Recovered/Resolved]
  - Muscular weakness [Not Recovered/Not Resolved]
  - Hypersomnia [Not Recovered/Not Resolved]
  - Headache [Not Recovered/Not Resolved]
  - Decreased appetite [Recovered/Resolved]
  - Lethargy [Unknown]
  - Pain in extremity [Not Recovered/Not Resolved]
  - Euphoric mood [Recovered/Resolved]
  - Unevaluable event [Recovered/Resolved]
  - Unevaluable event [Unknown]
